FAERS Safety Report 7948805-4 (Version None)
Quarter: 2011Q4

REPORT INFORMATION
  Report Type: 
  Country: None (occurrence: None)
  Receive Date: 20111123
  Receipt Date: 20111110
  Transmission Date: 20120403
  Serious: Yes (Death, Hospitalization)
  Sender: FDA-Public Use
  Company Number: MYCO20110018

PATIENT
  Age: 66 Year
  Sex: Male

DRUGS (2)
  1. MYCOPHENOLATE MOFETIL [Suspect]
     Indication: PEMPHIGUS
     Dosage: 2 IN 1 D, ORAL
     Route: 048
  2. PREDNISONE [Suspect]
     Indication: PEMPHIGUS
     Dosage: DAILY FOR 1 YEAR, ORAL
     Route: 048

REACTIONS (7)
  - STRONGYLOIDIASIS [None]
  - BACTERIAL SEPSIS [None]
  - LUNG INFILTRATION [None]
  - HAEMOGLOBIN DECREASED [None]
  - SEPTIC SHOCK [None]
  - ACUTE RESPIRATORY DISTRESS SYNDROME [None]
  - DISSEMINATED INTRAVASCULAR COAGULATION [None]
